FAERS Safety Report 9196631 (Version 1)
Quarter: 2013Q1

REPORT INFORMATION
  Report Type: Spontaneous
  Country: US (occurrence: None)
  Receive Date: 20120709
  Receipt Date: 20120709
  Transmission Date: 20140127
  Serious: Yes (Other)
  Sender: FDA-Public Use
  Company Number: PHEH2011US00578

PATIENT
  Sex: Male

DRUGS (1)
  1. GLEEVEC (IMATNIB) UNKNOWN [Suspect]
     Route: 048
     Dates: start: 20110711, end: 20110802

REACTIONS (1)
  - Drug ineffective [None]
